FAERS Safety Report 9376481 (Version 3)
Quarter: 2013Q3

REPORT INFORMATION
  Report Type: Spontaneous
  Country: DE (occurrence: DE)
  Receive Date: 20130701
  Receipt Date: 20130808
  Transmission Date: 20140515
  Serious: Yes (Other)
  Sender: FDA-Public Use
  Company Number: DE-RANBAXY-2013RR-70653

PATIENT
  Sex: Male

DRUGS (2)
  1. ZOLOFT [Suspect]
     Indication: MATERNAL EXPOSURE TIMING UNSPECIFIED
     Dosage: UNK
     Route: 064
  2. SERTRALIN [Suspect]
     Indication: MATERNAL EXPOSURE TIMING UNSPECIFIED
     Dosage: A MEAN ESTIMATED DAILY INTAKE OF 47 UG FOR SERTRALINE AND 84 UG FOR DESMETHYLSERTRALINE
     Route: 063

REACTIONS (4)
  - Serotonin syndrome [Recovered/Resolved]
  - Foetal exposure during pregnancy [Recovered/Resolved]
  - Exposure during breast feeding [Recovered/Resolved]
  - Premature baby [Recovered/Resolved]
